FAERS Safety Report 8588440-0 (Version None)
Quarter: 2012Q3

REPORT INFORMATION
  Report Type: 
  Country: None (occurrence: None)
  Receive Date: 20120813
  Receipt Date: 20120806
  Transmission Date: 20120928
  Serious: No
  Sender: FDA-Public Use
  Company Number: US-PFIZER INC-2012113589

PATIENT
  Age: 41 Year
  Sex: Female
  Weight: 61.2 kg

DRUGS (7)
  1. LYRICA [Suspect]
     Indication: NERVE INJURY
  2. SAVELLA [Concomitant]
     Indication: HORMONE LEVEL ABNORMAL
     Dosage: 25 MG DAILY
  3. LYRICA [Suspect]
     Indication: FIBROMYALGIA
     Dosage: 225MG IN THE MORNING AND 300MG IN THE NIGHT
     Dates: start: 20090101, end: 20120701
  4. LYRICA [Suspect]
     Indication: FATIGUE
  5. SAVELLA [Concomitant]
     Indication: INSOMNIA
  6. LYRICA [Suspect]
     Indication: MYOFASCIAL PAIN SYNDROME
  7. SAVELLA [Concomitant]
     Indication: FIBROMYALGIA
     Dosage: 12.5 MG DAILY

REACTIONS (14)
  - HEADACHE [None]
  - IRRITABILITY [None]
  - GAIT DISTURBANCE [None]
  - HYPOAESTHESIA EYE [None]
  - MUSCLE SPASMS [None]
  - SWELLING [None]
  - EYE PAIN [None]
  - PAIN IN EXTREMITY [None]
  - EYE DISORDER [None]
  - FACIAL PAIN [None]
  - LIMB DISCOMFORT [None]
  - ANXIETY [None]
  - ARTHRALGIA [None]
  - DRUG WITHDRAWAL SYNDROME [None]
